FAERS Safety Report 7893424-1 (Version None)
Quarter: 2011Q4

REPORT INFORMATION
  Report Type: 
  Country: None (occurrence: None)
  Receive Date: 20111104
  Receipt Date: 20111024
  Transmission Date: 20120403
  Serious: Yes (Other)
  Sender: FDA-Public Use
  Company Number: CH-ROCHE-1008722

PATIENT
  Age: 4 Year
  Sex: Female

DRUGS (2)
  1. DIAZEPAM [Suspect]
     Indication: CONVULSION
     Route: 054
  2. LORAZEPAM [Suspect]
     Indication: CONVULSION
     Route: 042

REACTIONS (2)
  - RESPIRATORY ACIDOSIS [None]
  - RESPIRATORY ARREST [None]
